FAERS Safety Report 8612121-8 (Version None)
Quarter: 2012Q3

REPORT INFORMATION
  Report Type: 
  Country: None (occurrence: None)
  Receive Date: 20120822
  Receipt Date: 20120817
  Transmission Date: 20120928
  Serious: Yes (Death, Hospitalization)
  Sender: FDA-Public Use
  Company Number: DE-CELGENEUS-062-21880-12082020

PATIENT
  Sex: Female

DRUGS (2)
  1. RITUXIMAB [Concomitant]
     Dosage: 375 MILLIGRAM/SQ. METER
     Route: 065
     Dates: start: 20120613
  2. REVLIMID [Suspect]
     Dosage: 10 MILLIGRAM
     Route: 048
     Dates: start: 20120613

REACTIONS (3)
  - HAEMOLYSIS [None]
  - ANTIBIOTIC RESISTANT STAPHYLOCOCCUS TEST [None]
  - NON-HODGKIN'S LYMPHOMA [None]
